FAERS Safety Report 10050835 (Version 1)
Quarter: 2014Q2

REPORT INFORMATION
  Report Type: Spontaneous
  Country: US (occurrence: US)
  Receive Date: 20140401
  Receipt Date: 20140401
  Transmission Date: 20141212
  Serious: No
  Sender: FDA-Public Use
  Company Number: US-ASTRAZENECA-2014SE06076

PATIENT
  Age: 53 Year
  Sex: Male
  Weight: 117.9 kg

DRUGS (7)
  1. NEXIUM EERD [Suspect]
     Indication: GASTROOESOPHAGEAL REFLUX DISEASE
     Route: 048
     Dates: start: 2002, end: 2013
  2. PRILOSEC OTC [Suspect]
     Indication: GASTROOESOPHAGEAL REFLUX DISEASE
     Dosage: UNKNOWN DAILY
     Route: 048
     Dates: start: 2013, end: 2013
  3. MELOXICAM [Concomitant]
     Indication: ARTHRITIS
     Route: 048
     Dates: start: 2013
  4. FAMOTIDINE [Concomitant]
     Route: 048
     Dates: start: 201311
  5. CYMBALTA [Concomitant]
     Route: 048
  6. LORITIDINE [Concomitant]
     Indication: SINUS DISORDER
     Route: 048
  7. ASPIRIN [Concomitant]
     Dosage: 1 DAILY
     Route: 048

REACTIONS (4)
  - Rheumatoid arthritis [Not Recovered/Not Resolved]
  - Fibromyalgia [Not Recovered/Not Resolved]
  - Intervertebral disc degeneration [Not Recovered/Not Resolved]
  - Drug ineffective [Not Recovered/Not Resolved]
